FAERS Safety Report 20245978 (Version 1)
Quarter: 2021Q4

REPORT INFORMATION
  Report Type: Spontaneous
  Country: US (occurrence: None)
  Receive Date: 20211228
  Receipt Date: 20211228
  Transmission Date: 20220303
  Serious: No
  Sender: FDA-Public Use
  Company Number: None

PATIENT
  Age: 27 Year
  Sex: Male
  Weight: 56.25 kg

DRUGS (3)
  1. PHENAZOPYRIDINE HYDROCHLORIDE [Suspect]
     Active Substance: PHENAZOPYRIDINE HYDROCHLORIDE
     Indication: Dysuria
     Dosage: FREQUENCY : 3 TIMES A DAY;?
     Route: 048
     Dates: start: 20211227, end: 20211228
  2. FLOMAX [Suspect]
     Active Substance: TAMSULOSIN HYDROCHLORIDE
  3. Nuvo Med Mood Enhancer [Concomitant]

REACTIONS (8)
  - Nausea [None]
  - Chills [None]
  - Vomiting [None]
  - Head discomfort [None]
  - Confusional state [None]
  - Pain [None]
  - Genital pain [None]
  - Bladder disorder [None]

NARRATIVE: CASE EVENT DATE: 20211227
